FAERS Safety Report 8961775 (Version 1)
Quarter: 2012Q4

REPORT INFORMATION
  Report Type: 
  Country: IE (occurrence: IE)
  Receive Date: 20121213
  Receipt Date: 20121213
  Transmission Date: 20130627
  Serious: Yes (Other)
  Sender: FDA-Public Use
  Company Number: IE-SANOFI-AVENTIS-2012SA089339

PATIENT
  Sex: Female

DRUGS (2)
  1. STILNOCT [Suspect]
     Indication: DRUG USE FOR UNKNOWN INDICATION
     Route: 065
     Dates: start: 20121117, end: 20121117
  2. ZIRTEK [Concomitant]
     Indication: RHINITIS ALLERGIC

REACTIONS (4)
  - Dysarthria [Unknown]
  - Medication error [Unknown]
  - Somnolence [Unknown]
  - Confusional state [Unknown]
